FAERS Safety Report 24314481 (Version 3)
Quarter: 2024Q4

REPORT INFORMATION
  Report Type: Report from Study
  Country: US (occurrence: US)
  Receive Date: 20240913
  Receipt Date: 20241014
  Transmission Date: 20250115
  Serious: Yes (Other)
  Sender: ABBVIE
  Company Number: US-ABBVIE-5809503

PATIENT
  Sex: Female
  Weight: 79 kg

DRUGS (4)
  1. SKYRIZI [Suspect]
     Active Substance: RISANKIZUMAB-RZAA
     Indication: Psoriasis
     Dosage: DISCONTINUED IN 2024
     Route: 058
     Dates: start: 20240326
  2. SKYRIZI [Suspect]
     Active Substance: RISANKIZUMAB-RZAA
     Dosage: THERPAY END DATE 2024
     Route: 058
     Dates: start: 20240401
  3. SKYRIZI [Suspect]
     Active Substance: RISANKIZUMAB-RZAA
     Dosage: THERAPY END DATE 2024
     Route: 058
     Dates: start: 20240526
  4. SKYRIZI [Suspect]
     Active Substance: RISANKIZUMAB-RZAA
     Route: 058
     Dates: start: 20240606

REACTIONS (5)
  - Hordeolum [Recovered/Resolved]
  - Ocular discomfort [Unknown]
  - Hordeolum [Recovering/Resolving]
  - Chalazion [Recovered/Resolved]
  - Hordeolum [Unknown]

NARRATIVE: CASE EVENT DATE: 20240101
